FAERS Safety Report 6876520-7 (Version None)
Quarter: 2010Q3

REPORT INFORMATION
  Report Type: 
  Country: None (occurrence: None)
  Receive Date: 20100727
  Receipt Date: 20100720
  Transmission Date: 20110219
  Serious: Yes (Life-Threatening, Hospitalization)
  Sender: FDA-Public Use
  Company Number: US-CELGENEUS-163-C5013-10071690

PATIENT
  Sex: Male
  Weight: 123.76 kg

DRUGS (32)
  1. CC-5013\PLACEBO [Suspect]
     Indication: PROSTATE CANCER
     Route: 048
     Dates: start: 20100518
  2. CC-5013\PLACEBO [Suspect]
     Route: 048
     Dates: start: 20100707
  3. DOCETAXEL [Suspect]
     Indication: PROSTATE CANCER
     Route: 065
     Dates: start: 20100518
  4. DOCETAXEL [Suspect]
     Route: 065
     Dates: start: 20100707
  5. PREDNISONE [Suspect]
     Indication: PROSTATE CANCER
     Route: 065
     Dates: start: 20100518
  6. PREDNISONE [Suspect]
     Route: 065
     Dates: start: 20100707
  7. DIFLUCAN [Concomitant]
     Indication: RASH
     Route: 048
     Dates: start: 20100528
  8. LOTRIMIN [Concomitant]
     Indication: RASH
     Route: 061
     Dates: start: 20100526, end: 20100528
  9. AMLODIPINE [Concomitant]
     Indication: HYPERTENSION
     Route: 048
     Dates: start: 19900101
  10. ATENOLOL [Concomitant]
     Indication: HYPERTENSION
     Route: 048
     Dates: start: 19900101
  11. ASPIRIN [Concomitant]
     Indication: THROMBOSIS PROPHYLAXIS
     Route: 048
     Dates: start: 19900101
  12. DEMADEX [Concomitant]
     Indication: HYPERTENSION
     Route: 065
     Dates: start: 19900101
  13. DEMADEX [Concomitant]
  14. FLOMAX [Concomitant]
     Route: 048
     Dates: start: 20020201
  15. HUMALOG [Concomitant]
     Dosage: SLIDING SCALE
     Route: 058
     Dates: start: 20080801
  16. IMDUR [Concomitant]
     Indication: HYPERTENSION
     Route: 048
     Dates: start: 19900101
  17. IMDUR [Concomitant]
     Route: 048
  18. LANTUS [Concomitant]
     Dosage: 50 UNITS
     Route: 058
     Dates: start: 20080801
  19. WARFARIN [Concomitant]
     Indication: THROMBOSIS PROPHYLAXIS
     Route: 048
     Dates: start: 20061001
  20. WARFARIN [Concomitant]
     Route: 065
  21. LUPRON [Concomitant]
     Indication: HORMONE SUPPRESSION THERAPY
     Route: 030
     Dates: start: 20090201
  22. MYCOSTATIN [Concomitant]
     Indication: RASH
     Route: 061
     Dates: start: 20100528
  23. VANCOMYCIN [Concomitant]
     Indication: PSEUDOMONAS INFECTION
     Route: 065
     Dates: start: 20100101
  24. VANCOMYCIN [Concomitant]
     Indication: PROTEUS INFECTION
  25. CIPRO [Concomitant]
     Indication: PSEUDOMONAS INFECTION
     Route: 065
     Dates: start: 20100101
  26. CIPRO [Concomitant]
     Indication: PROTEUS INFECTION
  27. PRIMAXIN [Concomitant]
     Indication: PSEUDOMONAS INFECTION
     Route: 065
     Dates: start: 20100101
  28. PRIMAXIN [Concomitant]
     Indication: PROTEUS INFECTION
  29. NEULASTA [Concomitant]
     Indication: PRODUCT USED FOR UNKNOWN INDICATION
     Route: 065
  30. IMIPENEM [Concomitant]
     Indication: PRODUCT USED FOR UNKNOWN INDICATION
     Route: 065
     Dates: start: 20100701
  31. PRAVASTATIN [Concomitant]
     Indication: PRODUCT USED FOR UNKNOWN INDICATION
     Route: 065
  32. LORTAB [Concomitant]
     Indication: PRODUCT USED FOR UNKNOWN INDICATION
     Route: 065

REACTIONS (3)
  - FEBRILE NEUTROPENIA [None]
  - GASTROINTESTINAL PERFORATION [None]
  - PERITONITIS [None]
